FAERS Safety Report 5385307-6 (Version None)
Quarter: 2007Q3

REPORT INFORMATION
  Report Type: 
  Country: None (occurrence: None)
  Receive Date: 20070712
  Receipt Date: 20070703
  Transmission Date: 20080115
  Serious: Yes (Death)
  Sender: FDA-Public Use
  Company Number: US-ROCHE-505526

PATIENT
  Sex: Male
  Weight: 57.2 kg

DRUGS (2)
  1. BONIVA [Suspect]
     Indication: DRUG USE FOR UNKNOWN INDICATION
     Route: 042
     Dates: start: 20070618, end: 20070618
  2. METHOTREXATE [Concomitant]

REACTIONS (3)
  - DEATH [None]
  - MALAISE [None]
  - PYREXIA [None]
